FAERS Safety Report 8218118-4 (Version None)
Quarter: 2012Q1

REPORT INFORMATION
  Report Type: 
  Country: None (occurrence: None)
  Receive Date: 20120319
  Receipt Date: 20120305
  Transmission Date: 20120608
  Serious: Yes (Hospitalization, Other)
  Sender: FDA-Public Use
  Company Number: FR-ROCHE-1041514

PATIENT
  Sex: Male
  Weight: 78 kg

DRUGS (1)
  1. PEGINTERFERON ALFA-2A [Suspect]
     Indication: HEPATITIS B
     Dates: start: 20111215, end: 20120120

REACTIONS (2)
  - HEPATIC STEATOSIS [None]
  - HEPATIC NEOPLASM MALIGNANT [None]
